FAERS Safety Report 24411818 (Version 4)
Quarter: 2024Q4

REPORT INFORMATION
  Report Type: Spontaneous
  Country: US (occurrence: US)
  Receive Date: 20241008
  Receipt Date: 20241118
  Transmission Date: 20250115
  Serious: Yes (Disabling, Other)
  Sender: ALEXION PHARMACEUTICALS
  Company Number: US-AstraZeneca-CH-00716153AP

PATIENT
  Age: 72 Year

DRUGS (1)
  1. BYDUREON BCISE [Suspect]
     Active Substance: EXENATIDE
     Dosage: 2 MILLIGRAM, 1-3 TIMES, 4 COUNT AUTOINJECTORS
     Route: 065

REACTIONS (5)
  - Mobility decreased [Unknown]
  - Fall [Unknown]
  - Incorrect dose administered by device [Unknown]
  - Device difficult to use [Unknown]
  - Device leakage [Unknown]
